APPROVED DRUG PRODUCT: DOCETAXEL
Active Ingredient: DOCETAXEL
Strength: 20MG/2ML (10MG/ML)
Dosage Form/Route: INJECTABLE;INJECTION
Application: A214575 | Product #001
Applicant: EUGIA PHARMA SPECIALITIES LTD
Approved: Jun 25, 2021 | RLD: No | RS: No | Type: DISCN